FAERS Safety Report 7269856-1 (Version None)
Quarter: 2011Q1

REPORT INFORMATION
  Report Type: 
  Country: None (occurrence: None)
  Receive Date: 20110202
  Receipt Date: 20110131
  Transmission Date: 20110831
  Serious: Yes (Death, Hospitalization)
  Sender: FDA-Public Use
  Company Number: US-JNJFOC-20110200397

PATIENT
  Sex: Female

DRUGS (6)
  1. MYSOLINE [Concomitant]
     Indication: CONVULSION PROPHYLAXIS
     Route: 048
  2. TRILEPTAL [Concomitant]
     Indication: CONVULSION PROPHYLAXIS
     Route: 048
  3. DIOVAN [Concomitant]
     Indication: HYPERTENSION
     Route: 048
  4. ATENOLOL [Concomitant]
     Indication: HYPERTENSION
     Route: 048
  5. TOPAMAX [Suspect]
     Indication: CONVULSION PROPHYLAXIS
     Dosage: 100 AND 50 MG ONCE IN AM AND 100 AND 50 MG ONCE IN PM
     Route: 048
  6. METFORMIN [Concomitant]
     Indication: TYPE 2 DIABETES MELLITUS
     Route: 048

REACTIONS (1)
  - CEREBROVASCULAR ACCIDENT [None]
